FAERS Safety Report 5401591-4 (Version None)
Quarter: 2007Q3

REPORT INFORMATION
  Report Type: 
  Country: None (occurrence: None)
  Receive Date: 20070731
  Receipt Date: 20070726
  Transmission Date: 20080115
  Serious: Yes (Hospitalization)
  Sender: FDA-Public Use
  Company Number: NL-ASTRAZENECA-2007AC00504

PATIENT
  Age: 13889 Day
  Sex: Female
  Weight: 55 kg

DRUGS (1)
  1. NEXIUM [Suspect]
     Indication: GASTROOESOPHAGEAL REFLUX DISEASE
     Route: 048
     Dates: start: 20070320, end: 20070322

REACTIONS (2)
  - DYSPNOEA [None]
  - PALPITATIONS [None]
